FAERS Safety Report 16011183 (Version 2)
Quarter: 2024Q4

REPORT INFORMATION
  Report Type: Spontaneous
  Country: DE (occurrence: DE)
  Receive Date: 20190227
  Receipt Date: 20241130
  Transmission Date: 20250114
  Serious: Yes (Hospitalization, Congenital Anomaly)
  Sender: UCB
  Company Number: DE-UCBSA-2019007555

PATIENT
  Sex: Male
  Weight: 3 kg

DRUGS (3)
  1. BRIVIACT [Suspect]
     Active Substance: BRIVARACETAM
     Indication: Seizure
     Dosage: 50 MG, 2X/DAY (BID)
     Route: 064
     Dates: start: 2017
  2. VIMPAT [Suspect]
     Active Substance: LACOSAMIDE
     Indication: Epilepsy
     Dosage: 200 MG, 2X/DAY (BID)
     Route: 064
     Dates: start: 2017
  3. ESLICARBAZEPINE ACETATE [Concomitant]
     Active Substance: ESLICARBAZEPINE ACETATE
     Indication: Epilepsy
     Dosage: 800 MG, ONCE DAILY (QD)
     Route: 064
     Dates: start: 2017

REACTIONS (3)
  - Cleft palate [Unknown]
  - Cardiac disorder [Unknown]
  - Maternal exposure during pregnancy [Unknown]

NARRATIVE: CASE EVENT DATE: 20170101
